FAERS Safety Report 21688311 (Version 1)
Quarter: 2022Q4

REPORT INFORMATION
  Report Type: Spontaneous
  Country: US (occurrence: US)
  Receive Date: 20221206
  Receipt Date: 20221206
  Transmission Date: 20230113
  Serious: Yes (Other)
  Sender: FDA-Public Use
  Company Number: US-JNJFOC-20221166944

PATIENT
  Sex: Female
  Weight: 65.830 kg

DRUGS (7)
  1. XARELTO [Suspect]
     Active Substance: RIVAROXABAN
     Indication: Atrial fibrillation
     Route: 048
     Dates: start: 2020
  2. XARELTO [Suspect]
     Active Substance: RIVAROXABAN
     Indication: Cerebrovascular accident prophylaxis
  3. XARELTO [Suspect]
     Active Substance: RIVAROXABAN
     Indication: Cardiac steatosis
  4. SYNTHROID [Concomitant]
     Active Substance: LEVOTHYROXINE SODIUM
     Indication: Hypothyroidism
     Route: 065
  5. ELAVIL [Concomitant]
     Active Substance: AMITRIPTYLINE HYDROCHLORIDE
     Indication: Anxiety
     Route: 065
  6. CARVEDILOL [Concomitant]
     Active Substance: CARVEDILOL
     Indication: Blood pressure measurement
     Route: 065
  7. FELODIPINE [Concomitant]
     Active Substance: FELODIPINE
     Indication: Blood pressure measurement
     Route: 065

REACTIONS (13)
  - Renal artery arteriosclerosis [Unknown]
  - Lipoma [Unknown]
  - Gastric polyps [Unknown]
  - Large intestine polyp [Unknown]
  - Immunoglobulins decreased [Unknown]
  - Blood disorder [Unknown]
  - Renal cyst [Unknown]
  - White blood cell count abnormal [Unknown]
  - Beta globulin decreased [Unknown]
  - Blood immunoglobulin G decreased [Unknown]
  - Light chain analysis abnormal [Unknown]
  - Arthralgia [Unknown]
  - Herpes zoster [Unknown]

NARRATIVE: CASE EVENT DATE: 20210101
